FAERS Safety Report 4837875-8 (Version None)
Quarter: 2005Q4

REPORT INFORMATION
  Report Type: 
  Country: None (occurrence: None)
  Receive Date: 20051024
  Receipt Date: 20050826
  Transmission Date: 20060501
  Serious: No
  Sender: FDA-Public Use
  Company Number: 217266

PATIENT
  Age: 61 Year
  Sex: Female

DRUGS (3)
  1. XOLAIR [Suspect]
     Indication: ASTHMA
     Dosage: 1/MONTH
     Dates: start: 20050309
  2. ALLEGRA [Concomitant]
  3. SINGULAIR [Concomitant]

REACTIONS (3)
  - DRUG INEFFECTIVE [None]
  - INFLUENZA LIKE ILLNESS [None]
  - OEDEMA PERIPHERAL [None]
